FAERS Safety Report 12649427 (Version 4)
Quarter: 2017Q1

REPORT INFORMATION
  Report Type: Spontaneous
  Country: JP (occurrence: JP)
  Receive Date: 20160812
  Receipt Date: 20170203
  Transmission Date: 20170428
  Serious: Yes (Hospitalization)
  Sender: FDA-Public Use
  Company Number: JP-ELI_LILLY_AND_COMPANY-JP201608005646

PATIENT
  Age: 57 Year
  Sex: Male

DRUGS (6)
  1. ERBITUX [Suspect]
     Active Substance: CETUXIMAB
     Dosage: 350 MG, WEEKLY (1/W)
     Route: 042
     Dates: start: 20160614
  2. CPT-11 [Suspect]
     Active Substance: IRINOTECAN
     Dosage: 142 MG, UNKNOWN
     Route: 065
     Dates: start: 20160706, end: 20160706
  3. CPT-11 [Suspect]
     Active Substance: IRINOTECAN
     Dosage: 171.6 MG, UNKNOWN
     Route: 065
     Dates: start: 20160622, end: 20160622
  4. ERBITUX [Suspect]
     Active Substance: CETUXIMAB
     Dosage: 357.7 MG, WEEKLY (1/W)
     Route: 042
     Dates: start: 20160622, end: 20160727
  5. ERBITUX [Suspect]
     Active Substance: CETUXIMAB
     Indication: RECTAL CANCER
     Dosage: 570 MG, WEEKLY (1/W)
     Route: 042
     Dates: start: 20160607
  6. CPT-11 [Suspect]
     Active Substance: IRINOTECAN
     Indication: RECTAL CANCER
     Dosage: 210 MG, UNKNOWN
     Route: 065
     Dates: start: 20160607, end: 20160607

REACTIONS (15)
  - Diarrhoea [Unknown]
  - Blood magnesium decreased [Unknown]
  - Off label use [Unknown]
  - Blood potassium increased [Unknown]
  - Cutaneous symptom [Unknown]
  - Febrile neutropenia [Recovered/Resolved]
  - Blood sodium decreased [Unknown]
  - Pyrexia [Unknown]
  - Cholangitis acute [Recovering/Resolving]
  - Blood albumin decreased [Unknown]
  - Aspartate aminotransferase increased [Unknown]
  - White blood cell count decreased [Recovered/Resolved]
  - Dry skin [Unknown]
  - Platelet count decreased [Recovered/Resolved]
  - Haemoglobin decreased [Unknown]

NARRATIVE: CASE EVENT DATE: 20160802
